FAERS Safety Report 6218845-4 (Version None)
Quarter: 2009Q2

REPORT INFORMATION
  Report Type: 
  Country: None (occurrence: None)
  Receive Date: 20090605
  Receipt Date: 20090520
  Transmission Date: 20091009
  Serious: Yes (Hospitalization)
  Sender: FDA-Public Use
  Company Number: DE-GENENTECH-284063

PATIENT
  Age: 78 Year

DRUGS (2)
  1. BEVACIZUMAB [Suspect]
     Indication: DRUG USE FOR UNKNOWN INDICATION
  2. CAPECITABINE [Suspect]
     Indication: DRUG USE FOR UNKNOWN INDICATION
     Dosage: 1500 MG, QD

REACTIONS (1)
  - FALL [None]
